FAERS Safety Report 25698256 (Version 1)
Quarter: 2025Q3

REPORT INFORMATION
  Report Type: Report from Study
  Country: MX (occurrence: MX)
  Receive Date: 20250819
  Receipt Date: 20250819
  Transmission Date: 20251020
  Serious: Yes (Other)
  Sender: AUROBINDO
  Company Number: MX-AUROBINDO-AUR-APL-2025-041550

PATIENT
  Age: 49 Year
  Sex: Female
  Weight: 80.5 kg

DRUGS (1)
  1. ACETAMINOPHEN\TRAMADOL [Suspect]
     Active Substance: ACETAMINOPHEN\TRAMADOL
     Indication: Product used for unknown indication
     Route: 065

REACTIONS (3)
  - Dizziness [Unknown]
  - Gastritis [Unknown]
  - Nausea [Unknown]

NARRATIVE: CASE EVENT DATE: 20211015
